FAERS Safety Report 5492344-X (Version None)
Quarter: 2007Q4

REPORT INFORMATION
  Report Type: 
  Country: None (occurrence: None)
  Receive Date: 20071022
  Receipt Date: 20071008
  Transmission Date: 20080405
  Serious: Yes (Other)
  Sender: FDA-Public Use
  Company Number: GB-RANBAXY-2007RR-10569

PATIENT

DRUGS (3)
  1. LORATADINE 10MG TABLETS [Suspect]
     Indication: HYPERSENSITIVITY
     Dosage: 10 MG, QD
     Route: 048
     Dates: start: 20070911, end: 20070911
  2. VITAMEDIN [Suspect]
     Indication: PAIN
     Dosage: UNK
     Route: 048
     Dates: start: 20070911, end: 20070911
  3. CELECOXIB [Concomitant]
     Indication: ARTHRALGIA
     Dosage: 200 MG, QD
     Route: 048
     Dates: start: 20070912, end: 20070915

REACTIONS (1)
  - EXTRASYSTOLES [None]
